FAERS Safety Report 7592677-7 (Version None)
Quarter: 2011Q2

REPORT INFORMATION
  Report Type: 
  Country: None (occurrence: None)
  Receive Date: 20110628
  Receipt Date: 20110614
  Transmission Date: 20111010
  Serious: Yes (Other)
  Sender: FDA-Public Use
  Company Number: 1000021730

PATIENT
  Age: 54 Year
  Sex: Female

DRUGS (2)
  1. CENTRAX (PRAZEPAM) [Concomitant]
  2. CITALOPRAM HYDROBROMIDE [Suspect]
     Dosage: 20 MG (20 MG, 1 IN 1 D)

REACTIONS (10)
  - BURNING SENSATION [None]
  - FEAR [None]
  - ENERGY INCREASED [None]
  - WITHDRAWAL SYNDROME [None]
  - DRUG INEFFECTIVE [None]
  - PANIC ATTACK [None]
  - DEPRESSION [None]
  - SUICIDE ATTEMPT [None]
  - HYPERSENSITIVITY [None]
  - ABNORMAL DREAMS [None]
